FAERS Safety Report 4663668-0 (Version None)
Quarter: 2005Q2

REPORT INFORMATION
  Report Type: 
  Country: None (occurrence: None)
  Receive Date: 20050517
  Receipt Date: 20050509
  Transmission Date: 20051028
  Serious: Yes (Other)
  Sender: FDA-Public Use
  Company Number: 2005NV000033

PATIENT
  Age: 51 Year
  Sex: Female
  Weight: 48.5349 kg

DRUGS (1)
  1. ESTRASORB [Suspect]
     Indication: ARTIFICIAL MENOPAUSE
     Dosage: 2 DF; QAM; TOP
     Route: 061
     Dates: start: 20050506, end: 20050508

REACTIONS (6)
  - FEELING ABNORMAL [None]
  - HYPERSENSITIVITY [None]
  - PARAESTHESIA [None]
  - PRURITUS [None]
  - RASH ERYTHEMATOUS [None]
  - RASH GENERALISED [None]
